FAERS Safety Report 8221212-5 (Version None)
Quarter: 2012Q1

REPORT INFORMATION
  Report Type: 
  Country: None (occurrence: None)
  Receive Date: 20120312
  Receipt Date: 20120228
  Transmission Date: 20120608
  Serious: Yes (Hospitalization, Other)
  Sender: FDA-Public Use
  Company Number: US-1190832

PATIENT
  Sex: Female

DRUGS (1)
  1. PATADAY [Suspect]
     Dosage: OPHTHALMIC
     Route: 047

REACTIONS (1)
  - CEREBROVASCULAR ACCIDENT [None]
